FAERS Safety Report 7974183-0 (Version None)
Quarter: 2011Q4

REPORT INFORMATION
  Report Type: 
  Country: None (occurrence: None)
  Receive Date: 20111213
  Receipt Date: 20111205
  Transmission Date: 20120403
  Serious: No
  Sender: FDA-Public Use
  Company Number: US-BAYER-2011-117236

PATIENT
  Age: 57 Year
  Sex: Female
  Weight: 52.154 kg

DRUGS (3)
  1. XANAX [Concomitant]
  2. ALEVE (CAPLET) [Suspect]
     Indication: ARTHRITIS
     Dosage: 1 DF, QD
     Route: 048
     Dates: start: 20111101, end: 20111205
  3. PREDNISONE TAB [Concomitant]

REACTIONS (1)
  - BLOOD PRESSURE FLUCTUATION [None]
